FAERS Safety Report 6337455-1 (Version None)
Quarter: 2009Q3

REPORT INFORMATION
  Report Type: 
  Country: None (occurrence: None)
  Receive Date: 20090901
  Receipt Date: 20090901
  Transmission Date: 20100115
  Serious: No
  Sender: FDA-Public Use
  Company Number: None

PATIENT
  Sex: Female
  Weight: 55.7924 kg

DRUGS (2)
  1. RIBAVIRIN [Suspect]
     Indication: HEPATITIS C VIRUS TEST
     Dosage: RIBAVIRIN BID PO
     Route: 048
     Dates: start: 20090716, end: 20090816
  2. PEGASYS [Suspect]
     Dosage: PEGASYS QWEEK SQ
     Route: 058
     Dates: start: 20090716, end: 20090816

REACTIONS (1)
  - HEADACHE [None]
